FAERS Safety Report 18877466 (Version 1)
Quarter: 2021Q1

REPORT INFORMATION
  Report Type: Spontaneous
  Country: FR (occurrence: FR)
  Receive Date: 20210211
  Receipt Date: 20210211
  Transmission Date: 20210420
  Serious: Yes (Hospitalization)
  Sender: FDA-Public Use
  Company Number: FR-TEVA-2021-FR-1877865

PATIENT
  Age: 76 Year
  Sex: Male
  Weight: 98 kg

DRUGS (1)
  1. ATORVASTATINE [Suspect]
     Active Substance: ATORVASTATIN
     Indication: DYSLIPIDAEMIA
     Dosage: 10 MG
     Route: 048
     Dates: end: 20210111

REACTIONS (1)
  - Dermatomyositis [Recovering/Resolving]

NARRATIVE: CASE EVENT DATE: 20210101
